FAERS Safety Report 5597776-7 (Version None)
Quarter: 2007Q4

REPORT INFORMATION
  Report Type: 
  Country: None (occurrence: None)
  Receive Date: 20071221
  Receipt Date: 20070920
  Transmission Date: 20080405
  Serious: No
  Sender: FDA-Public Use
  Company Number: SPV1-2007-04292

PATIENT
  Age: 9 Year
  Sex: Male
  Weight: 28.1 kg

DRUGS (3)
  1. VYVANSE [Suspect]
     Indication: ATTENTION DEFICIT/HYPERACTIVITY DISORDER
     Dosage: 50 MG, 1X/DAY:QD, ORAL
     Route: 048
     Dates: start: 20070920
  2. TENEX [Concomitant]
  3. PROZAC [Concomitant]

REACTIONS (5)
  - AFFECT LABILITY [None]
  - ANOREXIA [None]
  - DYSPHONIA [None]
  - DYSPNOEA [None]
  - IRRITABILITY [None]
